FAERS Safety Report 5728075-8 (Version None)
Quarter: 2008Q2

REPORT INFORMATION
  Report Type: 
  Country: None (occurrence: None)
  Receive Date: 20080505
  Receipt Date: 20080425
  Transmission Date: 20081010
  Serious: Yes (Life-Threatening, Hospitalization, Other)
  Sender: FDA-Public Use
  Company Number: US-PFIZER INC-2008036664

PATIENT
  Sex: Female
  Weight: 61.2 kg

DRUGS (3)
  1. LIPITOR [Suspect]
     Indication: BLOOD CHOLESTEROL INCREASED
  2. LISINOPRIL [Concomitant]
  3. VITAMIN CAP [Concomitant]

REACTIONS (8)
  - ABDOMINAL PAIN [None]
  - BLOOD URINE PRESENT [None]
  - DIARRHOEA [None]
  - HEPATIC FAILURE [None]
  - IMPAIRED WORK ABILITY [None]
  - RASH [None]
  - RENAL FAILURE [None]
  - VOMITING [None]
